FAERS Safety Report 9559192 (Version 1)
Quarter: 2013Q3

REPORT INFORMATION
  Report Type: Spontaneous
  Country: US (occurrence: None)
  Receive Date: 20130906
  Receipt Date: 20130906
  Transmission Date: 20140515
  Serious: Yes (Other)
  Sender: FDA-Public Use
  Company Number: 163-POMAL-13062367

PATIENT
  Age: 54 Year
  Sex: Female
  Weight: 67.59 kg

DRUGS (18)
  1. POMALYST (POMALIDOMIDE) (4 MILLIGRAM, CAPSULES) [Suspect]
     Indication: PLASMA CELL MYELOMA
     Dosage: 4 MG, 1 IN 1 D, PO
     Route: 048
     Dates: start: 20130515
  2. NORVASC (AMLODIPINE BESILATE) [Concomitant]
  3. ASPIRINE (ACETYLSALICYLIC ACID) [Concomitant]
  4. B COMPLEX (BECOSYM FORTE) [Concomitant]
  5. CALCIUM CARBONATE (CALCIUM CARBONATE) [Concomitant]
  6. DEXAMETHASONE (DEXAMETHASONE) [Concomitant]
  7. NEXIUM (ESOMEPRAZOLE) [Concomitant]
  8. NEURONTIN (GABAPENTIN) [Concomitant]
  9. ADVIL (IBUPROFEN) [Concomitant]
  10. AVALOX (MOXIFLOXACIN HYDROCHLORIDE) [Concomitant]
  11. OXYCONTIN (OXYCODONE HYDROCHLORIDE) [Concomitant]
  12. OXYCODONE (OXYCODONE) [Concomitant]
  13. MIRALAX [Concomitant]
  14. PRAVACHOL (PRAVASTATIN SODIUM) [Concomitant]
  15. VITAMIN B 6 (PYRIDOXINE HYDROCHLORIDE) [Concomitant]
  16. NUCYNTA (TAPENTADOL HYDROCHLORIDE) [Concomitant]
  17. VALTREX (VALACICLOVIR HYDROCHLORIDE) [Concomitant]
  18. EFFEXOR XR (VENLAFAXINE HYDROCHLORIDE) [Concomitant]

REACTIONS (2)
  - Pruritus [None]
  - Urticaria [None]
